FAERS Safety Report 6554767-7 (Version None)
Quarter: 2010Q1

REPORT INFORMATION
  Report Type: 
  Country: None (occurrence: None)
  Receive Date: 20100127
  Receipt Date: 20100119
  Transmission Date: 20100710
  Serious: Yes (Disabling, Other)
  Sender: FDA-Public Use
  Company Number: FI-ABBOTT-09P-055-0592784-00

PATIENT
  Sex: Female

DRUGS (2)
  1. HUMIRA [Suspect]
     Indication: RHEUMATOID ARTHRITIS
     Dates: start: 20090423, end: 20090507
  2. TREXAN [Concomitant]
     Indication: RHEUMATOID ARTHRITIS
     Dates: start: 20070101

REACTIONS (5)
  - DYSPHONIA [None]
  - DYSPNOEA [None]
  - HYPERSENSITIVITY [None]
  - MUSCLE STRAIN [None]
  - VOCAL CORD PARALYSIS [None]
